FAERS Safety Report 17512277 (Version 1)
Quarter: 2020Q1

REPORT INFORMATION
  Report Type: Report from Study
  Country: US (occurrence: US)
  Receive Date: 20200306
  Receipt Date: 20200306
  Transmission Date: 20200409
  Serious: Yes (Hospitalization)
  Sender: FDA-Public Use
  Company Number: US-PFIZER INC-2020082949

PATIENT
  Age: 66 Year
  Sex: Female
  Weight: 59.1 kg

DRUGS (24)
  1. TESSALON [Concomitant]
     Active Substance: BENZONATATE
     Dosage: 100 MG, TID
     Route: 048
  2. MARINOL [Concomitant]
     Active Substance: DRONABINOL
     Dosage: 5 MG, BID
     Route: 048
  3. LACTULOSE. [Concomitant]
     Active Substance: LACTULOSE
     Dosage: UNK UNK, PRN
  4. DIPHENOXYLATE/ATROPINE [Concomitant]
     Active Substance: ATROPINE\DIPHENOXYLATE
     Indication: DIARRHOEA
     Dosage: 2 TABS, PRN
     Route: 048
  5. LEVEMIR [Concomitant]
     Active Substance: INSULIN DETEMIR
     Route: 058
  6. METHYLPHENIDATE. [Concomitant]
     Active Substance: METHYLPHENIDATE
     Dosage: 5 MG, BID
     Route: 048
  7. OXYCODONE [Concomitant]
     Active Substance: OXYCODONE
     Dosage: 10 MG, Q6HR, PRN
     Route: 048
  8. GABAPENTIN. [Concomitant]
     Active Substance: GABAPENTIN
     Dosage: 600 MG, QID
     Route: 048
  9. HYDROCORTISONE. [Concomitant]
     Active Substance: HYDROCORTISONE
     Dosage: 10 MG, BID
     Route: 048
  10. MS CONTIN [Concomitant]
     Active Substance: MORPHINE SULFATE
     Dosage: 15 MG, Q12HR
     Route: 048
  11. PROCHLORPERAZINE. [Concomitant]
     Active Substance: PROCHLORPERAZINE
     Indication: VOMITING
  12. ENALAPRIL MALEATE. [Concomitant]
     Active Substance: ENALAPRIL MALEATE
     Dosage: UNK UNK, QDAY
     Route: 048
  13. NOVOLOG [Concomitant]
     Active Substance: INSULIN ASPART
     Dosage: UNK, AC B/L/D
     Route: 058
  14. MAGNESIUM OXIDE. [Concomitant]
     Active Substance: MAGNESIUM OXIDE
     Dosage: 400 MG, BID
     Route: 048
  15. ONDANSETRON [Concomitant]
     Active Substance: ONDANSETRON
     Dosage: 8 MG, Q8HR PRN
     Route: 048
  16. OXYCODONE [Concomitant]
     Active Substance: OXYCODONE
     Indication: PAIN
     Dosage: UNK, Q6HR
     Route: 048
  17. TRAMADOL. [Concomitant]
     Active Substance: TRAMADOL
     Dosage: 50 MG, Q8HR
     Route: 048
  18. PROCHLORPERAZINE. [Concomitant]
     Active Substance: PROCHLORPERAZINE
     Indication: NAUSEA
     Dosage: 10 MG, QID PRN
     Route: 048
  19. CISPLATIN. [Suspect]
     Active Substance: CISPLATIN
     Dosage: 627/6AUC MG/M2/DOSE, MONTHLY
     Dates: start: 20191010
  20. NOVOLOG [Concomitant]
     Active Substance: INSULIN ASPART
     Dosage: UNK, AC B/L/D
     Route: 058
  21. OMEPRAZOLE. [Concomitant]
     Active Substance: OMEPRAZOLE
     Dosage: UNK UNK, QDAY
     Route: 048
  22. IBRANCE [Suspect]
     Active Substance: PALBOCICLIB
     Dosage: 75 MG, DAILY
     Dates: start: 20191010
  23. COLACE [Concomitant]
     Active Substance: DOCUSATE SODIUM
     Dosage: 100 MG, BID
     Route: 048
  24. POTASSIUM CHLORIDE. [Concomitant]
     Active Substance: POTASSIUM CHLORIDE
     Dosage: 20 MEQ, QDAY
     Route: 048

REACTIONS (1)
  - Abdominal pain [Not Recovered/Not Resolved]

NARRATIVE: CASE EVENT DATE: 20200222
